FAERS Safety Report 5289304-0 (Version None)
Quarter: 2007Q2

REPORT INFORMATION
  Report Type: 
  Country: None (occurrence: None)
  Receive Date: 20070406
  Receipt Date: 20070329
  Transmission Date: 20071010
  Serious: Yes (Hospitalization)
  Sender: FDA-Public Use
  Company Number: TR-JNJFOC-20070307358

PATIENT
  Sex: Male

DRUGS (1)
  1. CONCERTA [Suspect]
     Indication: ATTENTION DEFICIT/HYPERACTIVITY DISORDER
     Route: 048
     Dates: start: 20070316, end: 20070318

REACTIONS (6)
  - DIPLOPIA [None]
  - NAUSEA [None]
  - PYREXIA [None]
  - TINNITUS [None]
  - TONSILLITIS [None]
  - TREMOR [None]
